FAERS Safety Report 7606491-7 (Version None)
Quarter: 2011Q3

REPORT INFORMATION
  Report Type: 
  Country: None (occurrence: None)
  Receive Date: 20110713
  Receipt Date: 20091219
  Transmission Date: 20111222
  Serious: Yes (Hospitalization, Other)
  Sender: FDA-Public Use
  Company Number: US-BAYER-201015777NA

PATIENT
  Age: 78 Year
  Sex: Male
  Weight: 111 kg

DRUGS (22)
  1. TRASYLOL [Suspect]
     Indication: ARTERIAL BYPASS OPERATION
     Dosage: 200ML LOADING DOSE
     Route: 042
     Dates: start: 20051020, end: 20051020
  2. MAGNESIUM [Concomitant]
     Dosage: 2 G, UNK
     Route: 042
     Dates: start: 20051020, end: 20051020
  3. LASIX [Concomitant]
     Dosage: 20 MG, UNK
     Route: 042
     Dates: start: 20051020, end: 20051020
  4. LISINOPRIL [Concomitant]
     Indication: HYPERTENSION
     Dosage: 40 MG, QD
     Route: 048
     Dates: start: 20010101
  5. ACTOS [Concomitant]
     Dosage: 30 MG, QD
     Route: 048
     Dates: start: 20000101
  6. TOPROL-XL [Concomitant]
     Indication: HYPERTENSION
     Dosage: 50 MG, QD
     Route: 048
     Dates: start: 20041217
  7. ANCEF [Concomitant]
     Dosage: 1 G, UNK
     Route: 042
     Dates: start: 20051020, end: 20051020
  8. RED BLOOD CELLS [Concomitant]
     Dosage: 2 U, UNK
     Route: 042
     Dates: start: 20051020
  9. TRASYLOL [Suspect]
     Dosage: 50ML/HR INFUSION
     Route: 042
     Dates: start: 20051020, end: 20051020
  10. HEPARIN [Concomitant]
     Dosage: 40000 U, UNK
     Route: 042
     Dates: start: 20051020, end: 20051020
  11. LISINOPRIL [Concomitant]
     Dosage: UNK
     Dates: start: 20000401
  12. FENTANYL-100 [Concomitant]
     Dosage: 20 MG, UNK
     Route: 042
     Dates: start: 20051020, end: 20051020
  13. ZINACEF [Concomitant]
     Dosage: 1.5 G, UNK
     Route: 042
     Dates: start: 20051020, end: 20051020
  14. TRASYLOL [Suspect]
     Indication: HEART VALVE REPLACEMENT
     Dosage: 200 ML, PUMP PRIME
     Dates: start: 20051020, end: 20051020
  15. NORVASC [Concomitant]
     Indication: HYPERTENSION
     Dosage: 5 MG, BID
     Route: 048
     Dates: start: 20050401
  16. AMARYL [Concomitant]
     Indication: DIABETES MELLITUS
     Dosage: 4 TWICE DAILY
     Route: 048
     Dates: start: 20000101
  17. LIPITOR [Concomitant]
     Indication: HYPERLIPIDAEMIA
     Dosage: 20 MG, QD
     Route: 048
     Dates: start: 19920101
  18. PROTAMINE SULFATE [Concomitant]
     Dosage: 330 MG, UNK
     Route: 042
     Dates: start: 20051020, end: 20051020
  19. GENTAMYCIN SULFATE [Concomitant]
     Dosage: 160 MG, UNK
     Route: 042
     Dates: start: 20051020, end: 20051020
  20. MIDAZOLAM HCL [Concomitant]
     Dosage: 6 MG, UNK
     Route: 042
     Dates: start: 20051020, end: 20051020
  21. CONTRAST MEDIA [Concomitant]
     Indication: CATHETERISATION CARDIAC
     Dosage: UNK
     Dates: start: 20051006
  22. ACETYLSALICYLIC ACID SRT [Concomitant]
     Dosage: 81 MG, UNK
     Route: 048
     Dates: start: 19990101

REACTIONS (11)
  - INJURY [None]
  - ANXIETY [None]
  - RENAL INJURY [None]
  - STRESS [None]
  - PAIN [None]
  - RENAL FAILURE [None]
  - EMOTIONAL DISTRESS [None]
  - RENAL IMPAIRMENT [None]
  - UNEVALUABLE EVENT [None]
  - FEAR [None]
  - MULTI-ORGAN FAILURE [None]
